FAERS Safety Report 24223957 (Version 1)
Quarter: 2024Q3

REPORT INFORMATION
  Report Type: Spontaneous
  Country: US (occurrence: None)
  Receive Date: 20240817
  Receipt Date: 20240817
  Transmission Date: 20241017
  Serious: No
  Sender: Public
  Company Number: None

PATIENT
  Age: 28 Year
  Sex: Female
  Weight: 121.5 kg

DRUGS (8)
  1. WEGOVY [Suspect]
     Active Substance: SEMAGLUTIDE
  2. DESVENLAFAXINE [Concomitant]
     Active Substance: DESVENLAFAXINE
  3. BUPROPION [Concomitant]
     Active Substance: BUPROPION
  4. STRATTERA [Concomitant]
     Active Substance: ATOMOXETINE HYDROCHLORIDE
  5. METOPROLOL [Concomitant]
     Active Substance: METOPROLOL
  6. KYLEENA [Concomitant]
     Active Substance: LEVONORGESTREL
  7. GUMMY VITAMINS [Concomitant]
  8. MELATONIN [Concomitant]
     Active Substance: MELATONIN

REACTIONS (2)
  - Uterine spasm [None]
  - Vaginal haemorrhage [None]

NARRATIVE: CASE EVENT DATE: 20240816
